FAERS Safety Report 8760708 (Version 2)
Quarter: 2012Q4

REPORT INFORMATION
  Report Type: Report from Study
  Country: DE (occurrence: DE)
  Receive Date: 20120830
  Receipt Date: 20121101
  Transmission Date: 20130627
  Serious: Yes (Hospitalization)
  Sender: FDA-Public Use
  Company Number: DE-JNJFOC-20120809364

PATIENT
  Sex: Female
  Weight: 47 kg

DRUGS (3)
  1. REMICADE [Suspect]
     Indication: COLITIS ULCERATIVE
     Route: 042
     Dates: start: 20100518, end: 20100810
  2. PREDNISOLONE [Concomitant]
     Indication: COLITIS ULCERATIVE
     Route: 048
  3. MESALAZIN [Concomitant]
     Indication: COLITIS ULCERATIVE
     Route: 048

REACTIONS (4)
  - Encephalitis [Recovering/Resolving]
  - Colitis ulcerative [Recovered/Resolved]
  - Colitis ulcerative [Recovering/Resolving]
  - Post procedural complication [Recovering/Resolving]
